FAERS Safety Report 9239735 (Version 1)
Quarter: 2013Q2

REPORT INFORMATION
  Report Type: Spontaneous
  Country: NL (occurrence: NL)
  Receive Date: 20130418
  Receipt Date: 20130418
  Transmission Date: 20140414
  Serious: Yes (Hospitalization)
  Sender: FDA-Public Use
  Company Number: NL-PFIZER INC-2013115768

PATIENT
  Sex: Female

DRUGS (1)
  1. ATORVASTATIN PFIZER [Suspect]
     Dosage: UNK

REACTIONS (4)
  - Loss of consciousness [Unknown]
  - Malaise [Unknown]
  - Abdominal discomfort [Unknown]
  - Oral mucosal blistering [Unknown]
